FAERS Safety Report 5009764-X (Version None)
Quarter: 2006Q2

REPORT INFORMATION
  Report Type: 
  Country: None (occurrence: None)
  Receive Date: 20060524
  Receipt Date: 19950223
  Transmission Date: 20061013
  Serious: Yes (Hospitalization)
  Sender: FDA-Public Use
  Company Number: AU-ROCHE-950194016001

PATIENT
  Age: 66 Year
  Sex: Male
  Weight: 90 kg

DRUGS (4)
  1. ISOTRETINOIN [Suspect]
     Route: 048
     Dates: start: 19940915, end: 19950127
  2. ATENOLOL [Concomitant]
     Indication: HYPERTENSION
     Route: 048
     Dates: start: 19940915
  3. FELODIPINE [Concomitant]
     Indication: HYPERTENSION
     Route: 048
     Dates: start: 19940915
  4. DICLOFENAC POTASSIUM [Concomitant]
     Indication: ARTHRITIS
     Route: 048

REACTIONS (5)
  - CEREBROVASCULAR ACCIDENT [None]
  - EPILEPSY [None]
  - LOSS OF CONSCIOUSNESS [None]
  - NERVOUS SYSTEM DISORDER [None]
  - RESPIRATORY ARREST [None]
